FAERS Safety Report 5313978-9 (Version None)
Quarter: 2007Q2

REPORT INFORMATION
  Report Type: 
  Country: None (occurrence: None)
  Receive Date: 20070501
  Receipt Date: 20070221
  Transmission Date: 20071010
  Serious: Yes (Hospitalization, Other)
  Sender: FDA-Public Use
  Company Number: US-PFIZER INC-2006141422

PATIENT
  Age: 57 Year
  Sex: Female
  Weight: 124.7 kg

DRUGS (3)
  1. LIPITOR [Suspect]
  2. GEMFIBROZIL [Suspect]
     Indication: HYPERLIPIDAEMIA
  3. LOVASTATIN [Suspect]
     Indication: HYPERLIPIDAEMIA
     Route: 048

REACTIONS (3)
  - MENINGITIS VIRAL [None]
  - RHABDOMYOLYSIS [None]
  - URINARY TRACT INFECTION [None]
